FAERS Safety Report 5079598-9 (Version None)
Quarter: 2006Q3

REPORT INFORMATION
  Report Type: 
  Country: None (occurrence: None)
  Receive Date: 20060808
  Receipt Date: 20060719
  Transmission Date: 20061208
  Serious: Yes (Other)
  Sender: FDA-Public Use
  Company Number: US200607003387

PATIENT
  Sex: Male

DRUGS (3)
  1. HUMALOG [Suspect]
     Indication: DIABETES MELLITUS
     Dates: start: 20030101
  2. HUMAN INSULIN (RDNA ORIGIN) (HUMAN INSULIN (RDNA ORIGIN)) [Suspect]
     Indication: DIABETES MELLITUS
     Dates: start: 20030101
  3. LANTUS [Concomitant]

REACTIONS (12)
  - AMNESIA [None]
  - BRAIN DEATH [None]
  - DEPRESSION [None]
  - FATIGUE [None]
  - GLYCOSYLATED HAEMOGLOBIN INCREASED [None]
  - HYPERSOMNIA [None]
  - IRRITABILITY [None]
  - MOOD SWINGS [None]
  - PERSONALITY CHANGE [None]
  - PHARMACEUTICAL PRODUCT COMPLAINT [None]
  - SUICIDAL IDEATION [None]
  - THINKING ABNORMAL [None]
